FAERS Safety Report 9289889 (Version 1)
Quarter: 2013Q2

REPORT INFORMATION
  Report Type: Report from Study
  Country: US (occurrence: US)
  Receive Date: 20130515
  Receipt Date: 20130515
  Transmission Date: 20140414
  Serious: No
  Sender: FDA-Public Use
  Company Number: PHEH2013US010603

PATIENT
  Age: 45 Year
  Sex: Female

DRUGS (7)
  1. TASIGNA [Suspect]
     Indication: CHRONIC MYELOID LEUKAEMIA
     Dosage: 300 MG, BID
     Route: 048
     Dates: start: 20120501, end: 20130501
  2. PAXIL [Suspect]
     Dates: start: 20120501
  3. GLYBURIDE [Concomitant]
  4. FERROUS SULFATE [Concomitant]
  5. LISINOPRIL [Concomitant]
  6. ATIVAN [Concomitant]
  7. METFORMIN [Concomitant]

REACTIONS (1)
  - Drug interaction [Unknown]
